FAERS Safety Report 13017467 (Version 1)
Quarter: 2016Q4

REPORT INFORMATION
  Report Type: Spontaneous
  Country: FR (occurrence: FR)
  Receive Date: 20161212
  Receipt Date: 20161212
  Transmission Date: 20170207
  Serious: Yes (Hospitalization)
  Sender: FDA-Public Use
  Company Number: FR-ROCHE-1863697

PATIENT
  Age: 68 Year
  Sex: Male

DRUGS (2)
  1. COBIMETINIB [Suspect]
     Active Substance: COBIMETINIB
     Indication: METASTATIC MALIGNANT MELANOMA
     Dosage: 60 MG ONCE DAILY FOR 21 DAYS, FOLLOWED BY 7 DAYS OFF
     Route: 065
  2. VEMURAFENIB [Suspect]
     Active Substance: VEMURAFENIB
     Indication: METASTATIC MALIGNANT MELANOMA
     Route: 065

REACTIONS (3)
  - Acute kidney injury [Unknown]
  - Hypertension [Unknown]
  - Posterior reversible encephalopathy syndrome [Recovered/Resolved]
